FAERS Safety Report 12863964 (Version 1)
Quarter: 2016Q4

REPORT INFORMATION
  Report Type: Spontaneous
  Country: CN (occurrence: CN)
  Receive Date: 20161019
  Receipt Date: 20161019
  Transmission Date: 20170207
  Serious: Yes (Life-Threatening)
  Sender: FDA-Public Use
  Company Number: CN-BAXTER-2016BAX052371

PATIENT
  Age: 71 Year
  Sex: Male
  Weight: 51 kg

DRUGS (2)
  1. 5% MANNITOL INJECTION [Suspect]
     Active Substance: MANNITOL
     Indication: BRAIN OEDEMA
     Route: 041
     Dates: start: 20160523, end: 20160524
  2. 5% MANNITOL INJECTION [Suspect]
     Active Substance: MANNITOL
     Dosage: DRUG RE-INTRODUCED
     Route: 041

REACTIONS (1)
  - Anaphylactic shock [Recovering/Resolving]

NARRATIVE: CASE EVENT DATE: 20160524
